FAERS Safety Report 12057605 (Version 2)
Quarter: 2016Q1

REPORT INFORMATION
  Report Type: Spontaneous
  Country: US (occurrence: US)
  Receive Date: 20160209
  Receipt Date: 20160331
  Transmission Date: 20160526
  Serious: Yes (Other)
  Sender: FDA-Public Use
  Company Number: US-ALLERGAN-1601643US

PATIENT
  Sex: Female

DRUGS (4)
  1. XALATAN [Concomitant]
     Active Substance: LATANOPROST
     Indication: GLAUCOMA
     Dosage: UNK, QD
     Route: 047
  2. DIOVAN [Concomitant]
     Active Substance: VALSARTAN
     Indication: HYPERTENSION
  3. NORVASC [Concomitant]
     Active Substance: AMLODIPINE BESYLATE
     Indication: HYPERTENSION
  4. ALPHAGAN P [Suspect]
     Active Substance: BRIMONIDINE TARTRATE
     Indication: GLAUCOMA
     Dosage: 2 DROPS IN RIGHT EYE, 3 DROPS IN LEFT EYE, DAILY
     Route: 047
     Dates: start: 2008, end: 201601

REACTIONS (4)
  - Wrong technique in product usage process [Unknown]
  - Neovascular age-related macular degeneration [Not Recovered/Not Resolved]
  - Retinal pigment epithelial tear [Not Recovered/Not Resolved]
  - Intraocular pressure fluctuation [Unknown]

NARRATIVE: CASE EVENT DATE: 201506
